FAERS Safety Report 7094389-5 (Version None)
Quarter: 2010Q4

REPORT INFORMATION
  Report Type: 
  Country: None (occurrence: None)
  Receive Date: 20101110
  Receipt Date: 20101105
  Transmission Date: 20110411
  Serious: Yes (Disabling, Other)
  Sender: FDA-Public Use
  Company Number: US-PFIZER INC-2010141660

PATIENT
  Sex: Male
  Weight: 132 kg

DRUGS (2)
  1. CELEBREX [Suspect]
     Indication: ARTHRITIS
     Dosage: 400 MG, 1X/DAY
     Route: 048
  2. CELEBREX [Suspect]
     Indication: ARTHRALGIA

REACTIONS (2)
  - ARTHRALGIA [None]
  - GAIT DISTURBANCE [None]
